FAERS Safety Report 12192293 (Version 3)
Quarter: 2016Q2

REPORT INFORMATION
  Report Type: Spontaneous
  Country: US (occurrence: US)
  Receive Date: 20160318
  Receipt Date: 20160425
  Transmission Date: 20160815
  Serious: Yes (Death, Other)
  Sender: FDA-Public Use
  Company Number: US-ABBVIE-16P-163-1586873-00

PATIENT
  Age: 44 Year
  Sex: Female

DRUGS (9)
  1. DEPAKOTE ER [Suspect]
     Active Substance: DIVALPROEX SODIUM
     Route: 048
     Dates: start: 2010
  2. DEPAKOTE ER [Suspect]
     Active Substance: DIVALPROEX SODIUM
     Indication: MIGRAINE
     Route: 048
     Dates: start: 200907
  3. MELOXICAM. [Suspect]
     Active Substance: MELOXICAM
     Indication: MIGRAINE
     Route: 065
     Dates: end: 201105
  4. WELLBUTRIN [Concomitant]
     Active Substance: BUPROPION HYDROCHLORIDE
     Indication: DEPRESSION
     Dates: end: 201101
  5. CITALOPRAM [Suspect]
     Active Substance: CITALOPRAM HYDROBROMIDE
     Route: 065
     Dates: start: 201101
  6. CAFFEINE. [Concomitant]
     Active Substance: CAFFEINE
     Indication: PRODUCT USED FOR UNKNOWN INDICATION
  7. DEPAKOTE ER [Suspect]
     Active Substance: DIVALPROEX SODIUM
     Route: 048
     Dates: start: 201101
  8. CITALOPRAM [Suspect]
     Active Substance: CITALOPRAM HYDROBROMIDE
     Indication: DEPRESSION
     Route: 065
     Dates: start: 2009
  9. NADOLOL. [Concomitant]
     Active Substance: NADOLOL
     Indication: HYPERTENSION

REACTIONS (9)
  - Ventricular fibrillation [Fatal]
  - Torsade de pointes [Fatal]
  - Alanine aminotransferase increased [Unknown]
  - Long QT syndrome [Fatal]
  - Hepatotoxicity [Unknown]
  - Blood alkaline phosphatase increased [Unknown]
  - Drug level increased [Fatal]
  - Arrhythmia [Fatal]
  - Aspartate aminotransferase increased [Unknown]

NARRATIVE: CASE EVENT DATE: 201105
